FAERS Safety Report 5427026-3 (Version None)
Quarter: 2007Q3

REPORT INFORMATION
  Report Type: 
  Country: None (occurrence: None)
  Receive Date: 20070731
  Receipt Date: 20070502
  Transmission Date: 20080115
  Serious: No
  Sender: FDA-Public Use
  Company Number: US200705000751

PATIENT
  Age: 56 Year
  Sex: Female
  Weight: 113.4 kg

DRUGS (5)
  1. BYETTA [Suspect]
     Indication: TYPE 2 DIABETES MELLITUS
     Dosage: 5 UG, 2/D, SUBCUTANEOUS
     Route: 058
     Dates: start: 20070101
  2. METFORMIN HCL [Concomitant]
  3. ACTOS [Concomitant]
  4. GLIPIZIDE [Concomitant]
  5. EXENATIDE PEN 5MG DISPOSAL DEVICE [Concomitant]

REACTIONS (4)
  - CHILLS [None]
  - FEELING COLD [None]
  - NAUSEA [None]
  - VOMITING [None]
